FAERS Safety Report 26174304 (Version 2)
Quarter: 2025Q4

REPORT INFORMATION
  Report Type: Report from Study
  Country: CA (occurrence: CA)
  Receive Date: 20251218
  Receipt Date: 20251223
  Transmission Date: 20260119
  Serious: Yes (Hospitalization)
  Sender: BAUSCH AND LOMB
  Company Number: CA-BAUSCH-BH-2025-022291

PATIENT
  Age: 69 Year
  Sex: Male

DRUGS (6)
  1. SILIQ [Suspect]
     Active Substance: BRODALUMAB
     Indication: Psoriasis
     Dosage: 210 MILLIGRAM/1.5 MILLILITER, Q2 WEEKS
     Route: 058
     Dates: start: 202003, end: 2025
  2. SILIQ [Suspect]
     Active Substance: BRODALUMAB
     Dosage: 210 MILLIGRAM/1.5 MILLILITER, WEEKLY (WEEK 0, 1 AND 2)
     Route: 058
     Dates: start: 20200226, end: 202003
  3. SILIQ [Suspect]
     Active Substance: BRODALUMAB
     Dosage: 210 MILLIGRAM/1.5 MILLILITER, WEEKLY
     Route: 058
     Dates: start: 2025
  4. INSULIN NOS [Concomitant]
     Active Substance: INSULIN NOS
     Indication: Type 2 diabetes mellitus
     Dosage: ONGOING
  5. CRESTOR [Concomitant]
     Active Substance: ROSUVASTATIN CALCIUM
     Indication: Blood cholesterol abnormal
     Dosage: ONGOING
  6. CORTISONE [Concomitant]
     Active Substance: CORTISONE
     Indication: Product used for unknown indication
     Dosage: OCCASIONAL USE.?ONGOING

REACTIONS (8)
  - Ill-defined disorder [Unknown]
  - Psoriasis [Recovered/Resolved]
  - Blood glucose increased [Unknown]
  - Blood cholesterol increased [Unknown]
  - Blood triglycerides increased [Unknown]
  - Haemoglobin increased [Unknown]
  - Off label use [Unknown]
  - Intentional product use issue [Unknown]

NARRATIVE: CASE EVENT DATE: 20250101
